FAERS Safety Report 8263410-0 (Version None)
Quarter: 2012Q2

REPORT INFORMATION
  Report Type: 
  Country: None (occurrence: None)
  Receive Date: 20120405
  Receipt Date: 20120326
  Transmission Date: 20120825
  Serious: Yes (Hospitalization)
  Sender: FDA-Public Use
  Company Number: US-CELGENEUS-163-21880-12033035

PATIENT
  Sex: Male
  Weight: 87.622 kg

DRUGS (3)
  1. REVLIMID [Suspect]
     Dosage: 5 MILLIGRAM
     Route: 048
     Dates: start: 20110126
  2. TRANSUSION [Concomitant]
     Route: 041
  3. PREDNISONE [Concomitant]
     Dosage: 60 MILLIGRAM
     Route: 065
     Dates: start: 20120215

REACTIONS (1)
  - GUILLAIN-BARRE SYNDROME [None]
